FAERS Safety Report 23380100 (Version 2)
Quarter: 2024Q1

REPORT INFORMATION
  Report Type: Other
  Country: US (occurrence: None)
  Receive Date: 20240109
  Receipt Date: 20240109
  Transmission Date: 20240410
  Serious: No
  Sender: FDA-Public Use
  Company Number: US-ROCHE-3486711

PATIENT
  Age: 49 Year
  Sex: Female
  Weight: 84.4 kg

DRUGS (19)
  1. OCREVUS [Suspect]
     Active Substance: OCRELIZUMAB
     Indication: Relapsing multiple sclerosis
     Dosage: INFUSION ;ONGOING: YES, DATE OF TREATMENT: 16/JUN/2023, 20/MAY/2019
     Route: 042
     Dates: start: 20190520
  2. TYLENOL [Concomitant]
     Active Substance: ACETAMINOPHEN
  3. VITAMIN C [Concomitant]
     Active Substance: ASCORBIC ACID
  4. LIPITOR [Concomitant]
     Active Substance: ATORVASTATIN CALCIUM
  5. ZYRTEC [Concomitant]
     Active Substance: CETIRIZINE HYDROCHLORIDE
  6. VITAMIN D3 [Concomitant]
     Active Substance: CHOLECALCIFEROL
  7. COLACE [Concomitant]
     Active Substance: DOCUSATE SODIUM
  8. CYMBALTA [Concomitant]
     Active Substance: DULOXETINE HYDROCHLORIDE
  9. VISTARIL [Concomitant]
     Active Substance: HYDROXYZINE PAMOATE
  10. NIZORAL [Concomitant]
     Active Substance: KETOCONAZOLE
  11. LAMICTAL [Concomitant]
     Active Substance: LAMOTRIGINE
  12. PRILOSEC [Concomitant]
     Active Substance: OMEPRAZOLE MAGNESIUM
  13. SYNTHROID [Concomitant]
     Active Substance: LEVOTHYROXINE SODIUM
  14. GLYCOLAX [Concomitant]
     Active Substance: POLYETHYLENE GLYCOL 3350
  15. OMEPRAZOLE [Concomitant]
     Active Substance: OMEPRAZOLE
  16. METAMUCIL [Concomitant]
     Active Substance: PLANTAGO SEED
  17. KENALOG [Concomitant]
     Active Substance: TRIAMCINOLONE ACETONIDE
  18. CYANOCOBALAMIN [Concomitant]
     Active Substance: CYANOCOBALAMIN
  19. ZINC [Concomitant]
     Active Substance: PYRITHIONE ZINC\ZINC\ZINC CHLORIDE

REACTIONS (1)
  - COVID-19 [Recovered/Resolved]
